FAERS Safety Report 6124358-0 (Version None)
Quarter: 2009Q1

REPORT INFORMATION
  Report Type: 
  Country: None (occurrence: None)
  Receive Date: 20090318
  Receipt Date: 20090318
  Transmission Date: 20090719
  Serious: Yes (Hospitalization)
  Sender: FDA-Public Use
  Company Number: None

PATIENT
  Age: 39 Year
  Sex: Female
  Weight: 77.2 kg

DRUGS (8)
  1. DASATINIB 50MG BRISTOL MEYER SQUIB [Suspect]
     Indication: BREAST CANCER METASTATIC
     Dosage: 100MG BID PO
     Route: 048
     Dates: start: 20090204, end: 20090316
  2. ZOFRAN [Concomitant]
  3. NEURONTIN [Concomitant]
  4. VICOPROFEN [Concomitant]
  5. IMODIUM [Concomitant]
  6. . [Concomitant]
  7. LIDOCAINE [Concomitant]
  8. LISINOPRIL AND HYDROCHLOROTHIAZIDE [Concomitant]

REACTIONS (11)
  - ASCITES [None]
  - BLOOD ALBUMIN DECREASED [None]
  - HYPONATRAEMIA [None]
  - HYPOPHAGIA [None]
  - INADEQUATE ANALGESIA [None]
  - JOINT RANGE OF MOTION DECREASED [None]
  - LYMPHOEDEMA [None]
  - NAUSEA [None]
  - OEDEMA PERIPHERAL [None]
  - PAIN [None]
  - VOMITING [None]
